FAERS Safety Report 10160322 (Version 3)
Quarter: 2015Q3

REPORT INFORMATION
  Report Type: Spontaneous
  Country: US (occurrence: US)
  Receive Date: 20140508
  Receipt Date: 20150731
  Transmission Date: 20151125
  Serious: Yes (Death, Hospitalization, Other)
  Sender: FDA-Public Use
  Company Number: US-GLAXOSMITHKLINE-A1071378A

PATIENT
  Age: 84 Year
  Sex: Female

DRUGS (23)
  1. FUROSEMIDE. [Concomitant]
     Active Substance: FUROSEMIDE
  2. IRON [Concomitant]
     Active Substance: IRON
  3. ANTICOAGULANT [Concomitant]
     Active Substance: UNSPECIFIED INGREDIENT
  4. FERROUS SULFATE [Concomitant]
     Active Substance: FERROUS SULFATE\FERROUS SULFATE, DRIED
  5. LEVOFLOXACIN. [Concomitant]
     Active Substance: LEVOFLOXACIN
  6. HYDROCODONE BITARTRATE AND ACETAMINOPHEN [Concomitant]
     Active Substance: ACETAMINOPHEN\HYDROCODONE BITARTRATE
  7. PANTOPRAZOLE [Concomitant]
     Active Substance: PANTOPRAZOLE SODIUM
  8. PROAIR HFA [Concomitant]
     Active Substance: ALBUTEROL SULFATE
  9. ADVAIR HFA [Suspect]
     Active Substance: FLUTICASONE PROPIONATE\SALMETEROL XINAFOATE
     Indication: CHRONIC OBSTRUCTIVE PULMONARY DISEASE
     Dosage: 250/50 MCG
     Route: 055
     Dates: start: 2012, end: 201409
  10. WARFARIN [Concomitant]
     Active Substance: WARFARIN
  11. NYSTATIN. [Concomitant]
     Active Substance: NYSTATIN
  12. POTASSIUM [Concomitant]
     Active Substance: POTASSIUM
  13. LISINOPRIL. [Concomitant]
     Active Substance: LISINOPRIL
  14. PREDNISONE. [Concomitant]
     Active Substance: PREDNISONE
  15. VITAMIN D3 [Concomitant]
     Active Substance: CHOLECALCIFEROL
  16. VITAMIN C [Concomitant]
     Active Substance: ASCORBIC ACID
  17. KLOR-CON [Concomitant]
     Active Substance: POTASSIUM CHLORIDE
  18. TAMSULOSIN [Concomitant]
     Active Substance: TAMSULOSIN
  19. AMLODIPINE BESYLATE. [Concomitant]
     Active Substance: AMLODIPINE BESYLATE
  20. CEPHALEXIN. [Concomitant]
     Active Substance: CEPHALEXIN
  21. SPIRIVA [Concomitant]
     Active Substance: TIOTROPIUM BROMIDE MONOHYDRATE
  22. VIAGRA [Concomitant]
     Active Substance: SILDENAFIL CITRATE
  23. METOPROLOL [Concomitant]
     Active Substance: METOPROLOL

REACTIONS (4)
  - Death [Fatal]
  - Heart rate increased [Not Recovered/Not Resolved]
  - Cardiac failure congestive [Not Recovered/Not Resolved]
  - Pneumonia [Not Recovered/Not Resolved]

NARRATIVE: CASE EVENT DATE: 20140311
